FAERS Safety Report 5703062-4 (Version None)
Quarter: 2008Q2

REPORT INFORMATION
  Report Type: 
  Country: None (occurrence: None)
  Receive Date: 20080408
  Receipt Date: 20080326
  Transmission Date: 20081010
  Serious: Yes (Hospitalization)
  Sender: FDA-Public Use
  Company Number: 2008JP001646

PATIENT
  Age: 45 Year
  Sex: Male

DRUGS (13)
  1. TACROLIMUS [Suspect]
     Indication: RENAL TRANSPLANT
     Dosage: 3 MG, BID
  2. METHYLPREDNISOLONE [Suspect]
     Dosage: 500 MG, /D, IV NOS
     Route: 042
  3. CAMPATH [Concomitant]
  4. CHLORPHENIRAMINE MALEATE [Concomitant]
  5. DOPAMINE HCL [Concomitant]
  6. CEFTRIAXONE [Concomitant]
  7. CIPROFLOXACIN [Concomitant]
  8. MEROPENEM (MEROPENEM) [Concomitant]
  9. VANCOMYCIN [Concomitant]
  10. MOXIFLOXACIN HCL [Concomitant]
  11. FLUCONAZOLE [Concomitant]
  12. COTRIM [Concomitant]
  13. VALGANCICLOVIR HCL [Concomitant]

REACTIONS (16)
  - ABDOMINAL DISTENSION [None]
  - ATELECTASIS [None]
  - AZOTAEMIA [None]
  - CARBOHYDRATE TOLERANCE DECREASED [None]
  - COAGULOPATHY [None]
  - FLUID OVERLOAD [None]
  - GRAFT DYSFUNCTION [None]
  - HAEMATOMA [None]
  - HAEMODIALYSIS [None]
  - HYPOTENSION [None]
  - ILEUS PARALYTIC [None]
  - LUNG CONSOLIDATION [None]
  - OLIGURIA [None]
  - PLEURAL EFFUSION [None]
  - SEPSIS [None]
  - THROMBOSIS [None]
